FAERS Safety Report 14363854 (Version 2)
Quarter: 2018Q1

REPORT INFORMATION
  Report Type: Spontaneous
  Country: JP (occurrence: JP)
  Receive Date: 20180108
  Receipt Date: 20180221
  Transmission Date: 20180509
  Serious: Yes (Life-Threatening, Other)
  Sender: FDA-Public Use
  Company Number: JP-PFIZER INC-2017493986

PATIENT
  Age: 84 Year
  Sex: Female

DRUGS (9)
  1. 5-FU /00098801/ [Concomitant]
     Active Substance: FLUOROURACIL
     Indication: NEOPLASM MALIGNANT
     Dosage: 2500 MG, 1X/DAY
     Route: 042
     Dates: start: 20171026
  2. LYRICA [Suspect]
     Active Substance: PREGABALIN
     Indication: HYPOAESTHESIA
  3. LYRICA [Suspect]
     Active Substance: PREGABALIN
     Indication: NEURALGIA
     Dosage: 150 MG DAILY (FREQUENCY: TWICE DAILY)
     Route: 048
     Dates: start: 20171113, end: 20171114
  4. ALOXI [Concomitant]
     Active Substance: PALONOSETRON HYDROCHLORIDE
     Indication: VOMITING
     Dosage: 0.75 MG, 1X/DAY
     Route: 042
     Dates: start: 20171026
  5. PROEMEND [Concomitant]
     Active Substance: FOSAPREPITANT
     Indication: VOMITING
     Dosage: 100 MG, 1X/DAY
     Route: 042
     Dates: start: 20171020
  6. LEVOFOLINATO [Concomitant]
     Indication: NEOPLASM MALIGNANT
     Dosage: 175 MG, 1X/DAY
     Route: 042
  7. ELPLAT [Concomitant]
     Active Substance: OXALIPLATIN
     Indication: NEOPLASM MALIGNANT
     Dosage: 80 MG, 1X/DAY
     Route: 042
     Dates: start: 20171026
  8. VECTIBIX [Concomitant]
     Active Substance: PANITUMUMAB
     Indication: NEOPLASM MALIGNANT
     Dosage: 200 MG, 1X/DAY
     Route: 017
  9. DECADRON [Concomitant]
     Active Substance: DEXAMETHASONE
     Dosage: 6.6 MG, 1X/DAY
     Route: 042
     Dates: start: 20171026

REACTIONS (3)
  - Loss of consciousness [Recovered/Resolved]
  - Somnolence [Recovered/Resolved]
  - Oxygen saturation decreased [Recovered/Resolved]

NARRATIVE: CASE EVENT DATE: 20171114
